FAERS Safety Report 20428566 (Version 1)
Quarter: 2022Q1

REPORT INFORMATION
  Report Type: Spontaneous
  Country: NL (occurrence: NL)
  Receive Date: 20220204
  Receipt Date: 20220204
  Transmission Date: 20220423
  Serious: Yes (Hospitalization, Other)
  Sender: FDA-Public Use
  Company Number: NL-VELOXIS PHARMACEUTICALS-2022VELNL-000039

PATIENT
  Age: 64 Year
  Sex: Male

DRUGS (2)
  1. TACROLIMUS [Suspect]
     Active Substance: TACROLIMUS
     Indication: Immunosuppressant drug therapy
     Dosage: UNK
  2. MYCOPHENOLATE MOFETIL [Suspect]
     Active Substance: MYCOPHENOLATE MOFETIL
     Indication: Immunosuppressant drug therapy
     Dosage: UNK

REACTIONS (5)
  - Pneumoperitoneum [Recovered/Resolved]
  - Pneumatosis intestinalis [Recovered/Resolved]
  - Sepsis [Recovered/Resolved]
  - Intestinal ischaemia [Recovered/Resolved]
  - Off label use [Unknown]
